FAERS Safety Report 19495614 (Version 1)
Quarter: 2021Q3

REPORT INFORMATION
  Report Type: Spontaneous
  Country: US (occurrence: US)
  Receive Date: 20210706
  Receipt Date: 20210706
  Transmission Date: 20211014
  Serious: No
  Sender: FDA-Public Use
  Company Number: US-TEVA-2021-US-1929386

PATIENT
  Sex: Female

DRUGS (1)
  1. CARBIDOPA AND LEVODOPA [Suspect]
     Active Substance: CARBIDOPA\LEVODOPA
     Dosage: 25/100
     Route: 065
     Dates: start: 2019

REACTIONS (6)
  - Head injury [Unknown]
  - Gait disturbance [Unknown]
  - Movement disorder [Unknown]
  - Product substitution issue [Unknown]
  - Therapeutic product effect decreased [Unknown]
  - Fall [Unknown]
